FAERS Safety Report 8233338-0 (Version None)
Quarter: 2012Q1

REPORT INFORMATION
  Report Type: 
  Country: None (occurrence: None)
  Receive Date: 20120323
  Receipt Date: 20120323
  Transmission Date: 20120608
  Serious: No
  Sender: FDA-Public Use
  Company Number: None

PATIENT

DRUGS (2)
  1. HEPARIN [Suspect]
     Dosage: INJECTABLE
  2. MAGNESIUM SULFATE [Suspect]
     Dosage: INJECTABLE

REACTIONS (2)
  - PRODUCT LABEL CONFUSION [None]
  - MEDICATION ERROR [None]
